FAERS Safety Report 7405061-3 (Version None)
Quarter: 2011Q2

REPORT INFORMATION
  Report Type: 
  Country: None (occurrence: None)
  Receive Date: 20110411
  Receipt Date: 20110404
  Transmission Date: 20111010
  Serious: Yes (Death, Other)
  Sender: FDA-Public Use
  Company Number: US-ASTELLAS-2011US001345

PATIENT
  Sex: Female

DRUGS (1)
  1. PROGRAF [Suspect]
     Indication: LIVER TRANSPLANT
     Dosage: 3 MG, BID
     Route: 048
     Dates: end: 20110323

REACTIONS (2)
  - CARDIAC ARREST [None]
  - RENAL FAILURE [None]
